FAERS Safety Report 9759828 (Version 1)
Quarter: 2013Q4

REPORT INFORMATION
  Report Type: Not Available
  Country: CA (occurrence: CA)
  Receive Date: 20131216
  Receipt Date: 20131216
  Transmission Date: 20140711
  Serious: Yes (Other)
  Sender: FDA-Public Use
  Company Number: CA-BEH-2013039504

PATIENT
  Age: 56 Year
  Sex: Female
  Weight: 99 kg

DRUGS (15)
  1. HIZENTRA [Suspect]
     Route: 058
  2. ATROVENT [Concomitant]
  3. CRESTOR [Concomitant]
  4. CROMOLYN NASAL MIST [Concomitant]
  5. DIAMICRON [Concomitant]
  6. FLOVENT [Concomitant]
  7. FUROSEMIDE [Concomitant]
  8. METFORMIN [Concomitant]
  9. NASONEX [Concomitant]
  10. NYSTATIN [Concomitant]
  11. REACTINE [Concomitant]
  12. SINGULAIR [Concomitant]
  13. SYNTHROID [Concomitant]
  14. TECTA [Concomitant]
  15. TYLENOL [Concomitant]

REACTIONS (9)
  - Vulvovaginal mycotic infection [Not Recovered/Not Resolved]
  - Vaginal haemorrhage [Not Recovered/Not Resolved]
  - Dyspnoea [Not Recovered/Not Resolved]
  - Immune system disorder [Not Recovered/Not Resolved]
  - Nasal congestion [Not Recovered/Not Resolved]
  - Oropharyngeal pain [Not Recovered/Not Resolved]
  - Swelling [Not Recovered/Not Resolved]
  - Urticaria [Not Recovered/Not Resolved]
  - Wheezing [Not Recovered/Not Resolved]
